FAERS Safety Report 21151536 (Version 1)
Quarter: 2022Q3

REPORT INFORMATION
  Report Type: Spontaneous
  Country: CA (occurrence: CA)
  Receive Date: 20220730
  Receipt Date: 20220730
  Transmission Date: 20221026
  Serious: Yes (Other)
  Sender: FDA-Public Use
  Company Number: None

PATIENT
  Age: 46 Year
  Sex: Female

DRUGS (11)
  1. METHOTREXATE [Suspect]
     Active Substance: METHOTREXATE
     Indication: Rheumatoid arthritis
     Route: 048
  2. ACTEMRA [Suspect]
     Active Substance: TOCILIZUMAB
     Indication: Product used for unknown indication
     Dosage: 1 EVERY 1 WEEKS
     Route: 065
  3. FOLIC ACID [Concomitant]
     Active Substance: FOLIC ACID
     Dosage: 1 EVERY 1 WEEKS
     Route: 065
  4. HYDROXYCHLOROQUINE SULFATE [Concomitant]
     Active Substance: HYDROXYCHLOROQUINE SULFATE
  5. PREDNISONE [Concomitant]
     Active Substance: PREDNISONE
     Dosage: EVERY 1 DAYS
  6. DENOSUMAB [Concomitant]
     Active Substance: DENOSUMAB
     Dosage: PRE-FILLED SYRINGE PRESERVATIVE FREE
  7. SULFASALAZINE [Concomitant]
     Active Substance: SULFASALAZINE
     Indication: Rheumatoid arthritis
     Route: 065
  8. TYLENOL [Concomitant]
     Active Substance: ACETAMINOPHEN
  9. VITAMIN D [Concomitant]
     Active Substance: VITAMIN D NOS
     Dosage: 2 EVERY 1 WEEKS
     Route: 065
  10. PREDNISONE [Concomitant]
     Active Substance: PREDNISONE
  11. DENOSUMAB [Concomitant]
     Active Substance: DENOSUMAB
     Dosage: PRE-FILLED SYRINGE PRESERVATIVE FREE
     Route: 058

REACTIONS (6)
  - Arthralgia [Not Recovered/Not Resolved]
  - Depression [Not Recovered/Not Resolved]
  - Fatigue [Not Recovered/Not Resolved]
  - Fibromyalgia [Not Recovered/Not Resolved]
  - Joint swelling [Not Recovered/Not Resolved]
  - Neutropenia [Not Recovered/Not Resolved]
